FAERS Safety Report 10543485 (Version 5)
Quarter: 2015Q2

REPORT INFORMATION
  Report Type: Spontaneous
  Country: US (occurrence: US)
  Receive Date: 20141027
  Receipt Date: 20150630
  Transmission Date: 20150821
  Serious: No
  Sender: FDA-Public Use
  Company Number: US-PFIZER INC-2014292001

PATIENT
  Age: 67 Year
  Sex: Female
  Weight: 54.42 kg

DRUGS (9)
  1. AGS-003 [Concomitant]
     Indication: RENAL CELL CARCINOMA
     Dosage: UNK
     Dates: start: 20141030
  2. BABY ASPIRIN [Concomitant]
     Active Substance: ASPIRIN
     Dosage: UNK
     Dates: start: 1998
  3. XGEVA [Concomitant]
     Active Substance: DENOSUMAB
     Dosage: UNK
     Dates: start: 20140903, end: 20150430
  4. VITAMIN C [Concomitant]
     Active Substance: ASCORBIC ACID
     Dosage: UNK
     Dates: start: 1998
  5. VITAMIN E [Concomitant]
     Active Substance: .ALPHA.-TOCOPHEROL
     Dosage: UNK
     Dates: start: 1998
  6. SUTENT [Suspect]
     Active Substance: SUNITINIB MALATE
     Indication: METASTATIC RENAL CELL CARCINOMA
     Dosage: 50 MG, CYCLIC (28 DAYS ON AND 14 DAYS OFF)
     Dates: start: 20140916, end: 20141201
  7. SUTENT [Suspect]
     Active Substance: SUNITINIB MALATE
     Dosage: 37.5 MG, CYCLIC (28 DAYS ON AND 14 DAYS OFF)
     Dates: start: 20141205, end: 20150430
  8. XGEVA [Concomitant]
     Active Substance: DENOSUMAB
     Dosage: UNK, MONTHLY
     Dates: start: 20140701
  9. CALCIUM WITH VITAMIN D [Concomitant]
     Active Substance: CALCIUM\VITAMIN D
     Dosage: UNK
     Dates: start: 1988

REACTIONS (14)
  - Lip blister [Unknown]
  - Retching [Recovered/Resolved]
  - White blood cell count decreased [Recovered/Resolved]
  - Diarrhoea [Recovering/Resolving]
  - Stomatitis [Recovering/Resolving]
  - Tongue blistering [Unknown]
  - Blister [Unknown]
  - Nausea [Recovered/Resolved]
  - Hair colour changes [Not Recovered/Not Resolved]
  - Asthenia [Recovering/Resolving]
  - Alopecia [Not Recovered/Not Resolved]
  - Dry mouth [Unknown]
  - Fatigue [Recovering/Resolving]
  - Oral mucosal blistering [Unknown]

NARRATIVE: CASE EVENT DATE: 2014
